FAERS Safety Report 17599197 (Version 1)
Quarter: 2020Q1

REPORT INFORMATION
  Report Type: Spontaneous
  Country: EG (occurrence: EG)
  Receive Date: 20200330
  Receipt Date: 20200330
  Transmission Date: 20200409
  Serious: Yes (Hospitalization)
  Sender: FDA-Public Use
  Company Number: EG-ASTRAZENECA-2020SE41781

PATIENT
  Age: 54 Year
  Sex: Male

DRUGS (7)
  1. HEPARIN [Concomitant]
     Active Substance: HEPARIN SODIUM
  2. PANTOPRAZOLE [Concomitant]
     Active Substance: PANTOPRAZOLE
  3. BRILIQUE [Suspect]
     Active Substance: TICAGRELOR
     Indication: MYOCARDIAL ISCHAEMIA
     Route: 048
     Dates: end: 20190408
  4. CONCOR [Concomitant]
     Active Substance: BISOPROLOL FUMARATE
     Dosage: 2.5 MG
     Route: 048
  5. ATOR [Concomitant]
     Active Substance: ATORVASTATIN CALCIUM
     Dosage: 80 MG
     Route: 048
  6. TRIDIL [Concomitant]
     Active Substance: NITROGLYCERIN
     Route: 042
  7. ASPOCID [Concomitant]
     Active Substance: ASPIRIN
     Dosage: 75 MG
     Route: 048

REACTIONS (2)
  - Angina pectoris [Recovered/Resolved]
  - Dyspnoea [Recovered/Resolved]
